FAERS Safety Report 25108618 (Version 1)
Quarter: 2025Q1

REPORT INFORMATION
  Report Type: Spontaneous
  Country: PL (occurrence: PL)
  Receive Date: 20250322
  Receipt Date: 20250322
  Transmission Date: 20250408
  Serious: Yes (Other)
  Sender: AUROBINDO
  Company Number: PL-TEVA-2022-PL-2075495

PATIENT
  Age: 54 Year
  Sex: Male

DRUGS (7)
  1. PREGABALIN [Suspect]
     Active Substance: PREGABALIN
     Indication: Pancreatic carcinoma
     Dosage: 600 MILLIGRAM, ONCE A DAY
     Route: 065
  2. ASCORBIC ACID [Interacting]
     Active Substance: ASCORBIC ACID
     Indication: Pancreatic carcinoma
     Route: 065
  3. FERROUS SULFATE [Interacting]
     Active Substance: FERROUS SULFATE
     Indication: Pancreatic carcinoma
     Route: 065
  4. METAMIZOLE [Suspect]
     Active Substance: METAMIZOLE
     Indication: Pancreatic carcinoma
     Route: 048
  5. OXYCODONE [Suspect]
     Active Substance: OXYCODONE
     Indication: Pancreatic carcinoma
     Dosage: 480 MILLIGRAM, ONCE A DAY (TITRATED DOSE)
     Route: 048
  6. LEVOMEPROMAZINE [Concomitant]
     Active Substance: LEVOMEPROMAZINE
     Indication: Product used for unknown indication
     Route: 048
  7. MEBEVERINE [Concomitant]
     Active Substance: MEBEVERINE
     Indication: Product used for unknown indication
     Dosage: 200 MILLIGRAM, ONCE A DAY
     Route: 065

REACTIONS (2)
  - Drug interaction [Unknown]
  - Functional gastrointestinal disorder [Recovering/Resolving]
